FAERS Safety Report 25529691 (Version 1)
Quarter: 2025Q3

REPORT INFORMATION
  Report Type: Spontaneous
  Country: EU (occurrence: EU)
  Receive Date: 20250708
  Receipt Date: 20250708
  Transmission Date: 20251021
  Serious: Yes (Other)
  Sender: CHEPLAPHARM
  Company Number: None

PATIENT
  Age: 29 Year
  Sex: Male

DRUGS (2)
  1. OLANZAPINE [Suspect]
     Active Substance: OLANZAPINE
     Indication: Suicide attempt
     Dosage: UNK
     Route: 048
     Dates: start: 20250530, end: 20250530
  2. WORMWOOD [Suspect]
     Active Substance: WORMWOOD
     Indication: Suicide attempt
     Route: 048

REACTIONS (2)
  - Suicide attempt [Unknown]
  - Sopor [Unknown]

NARRATIVE: CASE EVENT DATE: 20250530
